FAERS Safety Report 4876651-7 (Version None)
Quarter: 2006Q1

REPORT INFORMATION
  Report Type: 
  Country: None (occurrence: None)
  Receive Date: 20060110
  Receipt Date: 20041123
  Transmission Date: 20060701
  Serious: Yes (Hospitalization)
  Sender: FDA-Public Use
  Company Number: US-MERCK-0411USA03935

PATIENT
  Age: 55 Year
  Sex: Male
  Weight: 102 kg

DRUGS (1)
  1. VIOXX [Suspect]
     Indication: ARTHRITIS
     Route: 048
     Dates: start: 20000201, end: 20011201

REACTIONS (8)
  - CHEST PAIN [None]
  - CORONARY ARTERY DISEASE [None]
  - EYE PAIN [None]
  - FLANK PAIN [None]
  - INJURY [None]
  - LIPOMA [None]
  - PROSTATIC DISORDER [None]
  - SHOULDER PAIN [None]
